FAERS Safety Report 6178400-1 (Version None)
Quarter: 2009Q2

REPORT INFORMATION
  Report Type: 
  Country: None (occurrence: None)
  Receive Date: 20090504
  Receipt Date: 20090429
  Transmission Date: 20091009
  Serious: Yes (Disabling, Other)
  Sender: FDA-Public Use
  Company Number: IT-ALLERGAN-0809741US

PATIENT
  Sex: Female

DRUGS (2)
  1. ALPHAGAN [Suspect]
     Indication: INTRAOCULAR PRESSURE INCREASED
     Dosage: 2 GTT, QD
     Route: 047
     Dates: start: 20080701
  2. CARBONIC-ANHYDRASE INHIBITOR / BETA BLOCKER EYE DROP [Concomitant]
     Indication: DRUG USE FOR UNKNOWN INDICATION

REACTIONS (10)
  - CORNEAL INFILTRATES [None]
  - ERYTHEMA [None]
  - EYE IRRITATION [None]
  - EYE PAIN [None]
  - EYE PRURITUS [None]
  - HYPERSENSITIVITY [None]
  - OCULAR HYPERAEMIA [None]
  - RETINAL EXUDATES [None]
  - ULCERATIVE KERATITIS [None]
  - VISUAL ACUITY REDUCED [None]
